FAERS Safety Report 14305581 (Version 1)
Quarter: 2017Q4

REPORT INFORMATION
  Report Type: Spontaneous
  Country: JP (occurrence: JP)
  Receive Date: 20171219
  Receipt Date: 20171219
  Transmission Date: 20180321
  Serious: Yes (Other)
  Sender: FDA-Public Use
  Company Number: JP-OTSUKA-JP-2011-11173

PATIENT
  Age: 59 Year
  Sex: Male
  Weight: 63 kg

DRUGS (13)
  1. ABILIFY [Suspect]
     Active Substance: ARIPIPRAZOLE
     Dosage: 12 MG, QD
     Route: 048
     Dates: start: 20110727, end: 20110927
  2. ABILIFY [Suspect]
     Active Substance: ARIPIPRAZOLE
     Dosage: 6 MG, QD
     Route: 048
     Dates: start: 20110928, end: 201110
  3. ABILIFY [Suspect]
     Active Substance: ARIPIPRAZOLE
     Dosage: 12 MG, QD
     Route: 048
     Dates: start: 20100914, end: 20101018
  4. ABILIFY [Suspect]
     Active Substance: ARIPIPRAZOLE
     Indication: SCHIZOPHRENIA
     Dosage: 6 MG, QD
     Route: 048
     Dates: start: 20100907, end: 20100913
  5. ABILIFY [Suspect]
     Active Substance: ARIPIPRAZOLE
     Dosage: 24 MG, QD
     Route: 048
     Dates: start: 20101019, end: 20110726
  6. MENESIT [Concomitant]
     Active Substance: CARBIDOPA\LEVODOPA
     Indication: PARKINSON^S DISEASE
     Dosage: 150 MG, QD
     Route: 048
     Dates: start: 20090519
  7. ZYPREXA [Suspect]
     Active Substance: OLANZAPINE
     Indication: SCHIZOPHRENIA
     Dosage: 20 MG, QD
     Route: 048
     Dates: start: 20050912, end: 20110719
  8. OLANZAPINE. [Suspect]
     Active Substance: OLANZAPINE
     Indication: SCHIZOPHRENIA
     Dosage: TABS
     Route: 048
     Dates: start: 20050912, end: 20110719
  9. DEPAKENE [Concomitant]
     Active Substance: VALPROIC ACID
     Indication: MANIA
     Dosage: 400 MG, QD
     Route: 048
     Dates: start: 20051108, end: 20060308
  10. DEPAKENE [Concomitant]
     Active Substance: VALPROIC ACID
     Dosage: 300 MG, QD
     Route: 048
     Dates: start: 20060309, end: 20070321
  11. DEPAKENE [Concomitant]
     Active Substance: VALPROIC ACID
     Dosage: 800 MG, QD
     Route: 048
     Dates: start: 20070514, end: 20080330
  12. DEPAKENE [Concomitant]
     Active Substance: VALPROIC ACID
     Dosage: 500 MG, QD
     Route: 048
     Dates: start: 20070322, end: 20070513
  13. DEPAKENE [Concomitant]
     Active Substance: VALPROIC ACID
     Dosage: 600 MG, QD
     Route: 048
     Dates: start: 20080331

REACTIONS (1)
  - Blood glucose increased [Recovering/Resolving]

NARRATIVE: CASE EVENT DATE: 20110719
